FAERS Safety Report 11222720 (Version 1)
Quarter: 2015Q2

REPORT INFORMATION
  Report Type: Report from Study
  Country: US (occurrence: US)
  Receive Date: 20150626
  Receipt Date: 20150626
  Transmission Date: 20150821
  Serious: Yes (Other)
  Sender: FDA-Public Use
  Company Number: US-SA-2014SA040934

PATIENT
  Age: 57 Year
  Sex: Male

DRUGS (4)
  1. BUPROPION [Concomitant]
     Active Substance: BUPROPION
     Dosage: SINCE 3 MONTHS
  2. AUBAGIO [Suspect]
     Active Substance: TERIFLUNOMIDE
     Indication: MULTIPLE SCLEROSIS
     Route: 048
     Dates: start: 20131207, end: 20150423
  3. TECFIDERA [Concomitant]
     Active Substance: DIMETHYL FUMARATE
     Dates: start: 20131104, end: 20131118
  4. AUBAGIO [Suspect]
     Active Substance: TERIFLUNOMIDE
     Indication: MULTIPLE SCLEROSIS
     Route: 065
     Dates: start: 201312

REACTIONS (19)
  - Pain [Unknown]
  - Blood pressure increased [Not Recovered/Not Resolved]
  - Rash generalised [Recovering/Resolving]
  - Blister [Recovering/Resolving]
  - Constipation [Unknown]
  - Sinusitis [Unknown]
  - Chills [Recovering/Resolving]
  - Vision blurred [Recovering/Resolving]
  - Fatigue [Recovering/Resolving]
  - Optic neuritis [Recovering/Resolving]
  - Headache [Recovering/Resolving]
  - Rash papular [Recovered/Resolved]
  - Hepatic enzyme increased [Unknown]
  - Night sweats [Recovering/Resolving]
  - Wound secretion [Recovering/Resolving]
  - Chromaturia [Unknown]
  - Dizziness [Unknown]
  - Impaired driving ability [Recovering/Resolving]
  - Feeling abnormal [Unknown]

NARRATIVE: CASE EVENT DATE: 201403
